FAERS Safety Report 14126861 (Version 1)
Quarter: 2017Q4

REPORT INFORMATION
  Report Type: Spontaneous
  Country: US (occurrence: US)
  Receive Date: 20171025
  Receipt Date: 20171025
  Transmission Date: 20180321
  Serious: No
  Sender: FDA-Public Use
  Company Number: US-TEVA-817741ACC

PATIENT
  Sex: Female
  Weight: 49.94 kg

DRUGS (2)
  1. PARAGARD T 380A [Suspect]
     Active Substance: COPPER
     Indication: CONTRACEPTION
     Dates: start: 20171013
  2. KEFLEX [Concomitant]
     Active Substance: CEPHALEXIN
     Indication: ACNE

REACTIONS (1)
  - Vaginal haemorrhage [Not Recovered/Not Resolved]
